FAERS Safety Report 7297463-3 (Version None)
Quarter: 2011Q1

REPORT INFORMATION
  Report Type: 
  Country: None (occurrence: None)
  Receive Date: 20110216
  Receipt Date: 20110211
  Transmission Date: 20110831
  Serious: Yes (Other)
  Sender: FDA-Public Use
  Company Number: CA-ABBOTT-11P-028-0704570-00

PATIENT
  Age: 45 Year
  Sex: Male

DRUGS (2)
  1. KALETRA [Suspect]
     Indication: PRODUCT USED FOR UNKNOWN INDICATION
  2. KIVEXA [Suspect]
     Indication: PRODUCT USED FOR UNKNOWN INDICATION
     Dosage: 1.0 DOSAGE FORMS, ONCE
     Route: 048

REACTIONS (3)
  - MENINGITIS ASEPTIC [None]
  - VIITH NERVE PARALYSIS [None]
  - MUSCULAR WEAKNESS [None]
